FAERS Safety Report 17055081 (Version 2)
Quarter: 2019Q4

REPORT INFORMATION
  Report Type: Spontaneous
  Country: TW (occurrence: TW)
  Receive Date: 20191120
  Receipt Date: 20191230
  Transmission Date: 20200122
  Serious: Yes (Death, Other)
  Sender: FDA-Public Use
  Company Number: NVSC2019TW040075

PATIENT

DRUGS (2)
  1. FEMARA [Suspect]
     Active Substance: LETROZOLE
     Indication: BREAST CANCER METASTATIC
     Dosage: UNK
     Route: 065
     Dates: start: 201806
  2. AFINITOR [Suspect]
     Active Substance: EVEROLIMUS
     Indication: BREAST CANCER METASTATIC
     Dosage: UNK
     Route: 065
     Dates: start: 20190129, end: 20190902

REACTIONS (7)
  - Death [Fatal]
  - Peripheral swelling [Unknown]
  - Retroperitoneal fibrosis [Unknown]
  - Metastases to lymph nodes [Unknown]
  - Metastases to bone [Unknown]
  - Metastases to liver [Unknown]
  - Back pain [Unknown]
